FAERS Safety Report 18140340 (Version 1)
Quarter: 2020Q3

REPORT INFORMATION
  Report Type: Spontaneous
  Country: US (occurrence: US)
  Receive Date: 20200812
  Receipt Date: 20200812
  Transmission Date: 20201103
  Serious: Yes (Other)
  Sender: FDA-Public Use
  Company Number: None

PATIENT
  Age: 57 Year
  Sex: Female

DRUGS (2)
  1. PROMETRIUM [Suspect]
     Active Substance: PROGESTERONE
     Indication: HORMONE REPLACEMENT THERAPY
     Route: 048
     Dates: start: 20200629, end: 20200713
  2. E[INVALID]2MG VAGINAL RING [Concomitant]
     Dates: start: 20181224

REACTIONS (2)
  - Sleep disorder [None]
  - Menstruation irregular [None]

NARRATIVE: CASE EVENT DATE: 20200629
